FAERS Safety Report 8707454 (Version 2)
Quarter: 2013Q4

REPORT INFORMATION
  Report Type: Spontaneous
  Country: US (occurrence: US)
  Receive Date: 20120804
  Receipt Date: 20131031
  Transmission Date: 20140711
  Serious: No
  Sender: FDA-Public Use
  Company Number: US-009507513-2012SP034572

PATIENT
  Sex: Male

DRUGS (11)
  1. VICTRELIS [Suspect]
     Indication: HEPATITIS C
     Dosage: 800 MG, TID
     Route: 048
     Dates: start: 20120407
  2. MK-8908 [Suspect]
  3. PEGASYS [Suspect]
  4. GEODON [Concomitant]
  5. MK-9384 [Concomitant]
  6. NORCO [Concomitant]
  7. AMBIEN [Concomitant]
  8. SPIRIVA [Concomitant]
  9. RESTASIS [Concomitant]
  10. BENADRYL [Concomitant]
  11. LEVOXYL [Concomitant]

REACTIONS (1)
  - Dysgeusia [Unknown]
